FAERS Safety Report 7759727-6 (Version None)
Quarter: 2011Q3

REPORT INFORMATION
  Report Type: 
  Country: None (occurrence: None)
  Receive Date: 20110919
  Receipt Date: 20110907
  Transmission Date: 20111222
  Serious: Yes (Hospitalization)
  Sender: FDA-Public Use
  Company Number: FR-CELGENEUS-056-C5013-11041131

PATIENT
  Sex: Male
  Weight: 80 kg

DRUGS (23)
  1. LASIX [Concomitant]
     Indication: OEDEMA
     Dosage: 40 MILLIGRAM
     Route: 048
     Dates: start: 20091229
  2. TRAMADOL HCL [Concomitant]
     Dosage: 200 MILLIGRAM
     Route: 048
     Dates: start: 20091229
  3. ACETAMINOPHEN [Concomitant]
     Route: 048
     Dates: start: 20091211
  4. DEXAMETHASONE [Suspect]
     Dosage: 20 MILLIGRAM
     Route: 065
     Dates: start: 20110101
  5. ANTITHROMBOTIC AGENTS [Concomitant]
     Route: 065
  6. TRAMADOL HCL [Concomitant]
     Route: 048
     Dates: start: 20091229
  7. ALPRAZOLAM [Concomitant]
     Dosage: .25 MILLIGRAM
     Route: 065
  8. FORLAX [Concomitant]
     Indication: CONSTIPATION PROPHYLAXIS
     Dosage: 2 DOSAGE FORMS
     Route: 048
     Dates: start: 20091031
  9. NOVORAPID [Concomitant]
     Dosage: 35 IU (INTERNATIONAL UNIT)
     Route: 058
     Dates: start: 20091208
  10. ALFUZOSIN HCL [Concomitant]
     Dosage: 10 MILLIGRAM
     Route: 048
     Dates: start: 20091030
  11. ACETAMINOPHEN [Concomitant]
     Dosage: 4 GRAM
     Route: 065
  12. FLUCONAZOLE [Concomitant]
     Dosage: 3 DOSAGE FORMS
     Route: 065
  13. LENALIDOMIDE [Suspect]
     Dosage: 20 MILLIGRAM
     Route: 048
     Dates: start: 20110401
  14. DEXAMETHASONE [Suspect]
     Dosage: 20 MILLIGRAM
     Route: 065
     Dates: start: 20110401
  15. DEXAMETHASONE [Suspect]
     Indication: MULTIPLE MYELOMA
     Dosage: 40 MILLIGRAM
     Route: 065
     Dates: start: 20091127
  16. ACETAMINOPHEN [Concomitant]
     Route: 048
     Dates: start: 20091001
  17. CALCIUM CARBONATE [Concomitant]
     Dosage: 2 DOSAGE FORMS
     Route: 048
     Dates: start: 20091229
  18. INNOHEP [Concomitant]
     Indication: THROMBOSIS PROPHYLAXIS
     Dosage: 14000 IU (INTERNATIONAL UNIT)
     Route: 058
     Dates: start: 20101102
  19. CLONAZEPAM [Concomitant]
     Dosage: 5 IN THE MORNING, 5 AT LUNCHTIME, 10 IN THE EVENING
     Route: 065
  20. NEXIUM [Concomitant]
     Indication: OESOPHAGITIS
     Dosage: 40 MILLIGRAM
     Route: 048
     Dates: start: 20100128
  21. UMULINE [Concomitant]
     Dosage: 23IU IN THE MORNING, 6IU IN THE EVENINGS
     Route: 065
  22. LENALIDOMIDE [Suspect]
     Indication: MULTIPLE MYELOMA
     Dosage: 10 MILLIGRAM
     Route: 048
     Dates: start: 20091127
  23. AMITRIPTYLINE HCL [Concomitant]
     Dosage: 36 DROPS
     Route: 065

REACTIONS (1)
  - BACK PAIN [None]
